FAERS Safety Report 4293319-9 (Version None)
Quarter: 2004Q1

REPORT INFORMATION
  Report Type: 
  Country: None (occurrence: None)
  Receive Date: 20040212
  Receipt Date: 20030619
  Transmission Date: 20041129
  Serious: No
  Sender: FDA-Public Use
  Company Number: US-GLAXOSMITHKLINE-A0413130A

PATIENT
  Sex: Female

DRUGS (3)
  1. PAXIL [Suspect]
     Dosage: 50MG PER DAY
     Route: 048
     Dates: start: 20021201
  2. LEVOXYL [Concomitant]
  3. DEPO-PROVERA [Concomitant]

REACTIONS (9)
  - DIARRHOEA [None]
  - MUSCLE CRAMP [None]
  - NIGHT SWEATS [None]
  - NIGHTMARE [None]
  - PAIN [None]
  - PRURITUS [None]
  - SINUSITIS [None]
  - TOOTH FRACTURE [None]
  - WEIGHT INCREASED [None]
